FAERS Safety Report 18659412 (Version 1)
Quarter: 2020Q4

REPORT INFORMATION
  Report Type: Spontaneous
  Country: US (occurrence: US)
  Receive Date: 20201223
  Receipt Date: 20201223
  Transmission Date: 20210114
  Serious: Yes (Death)
  Sender: FDA-Public Use
  Company Number: US-ANIPHARMA-2020-US-025490

PATIENT
  Age: 76 Year
  Sex: Female
  Weight: 24.04 kg

DRUGS (3)
  1. ANASTROZOLE. [Suspect]
     Active Substance: ANASTROZOLE
     Indication: BREAST CANCER STAGE IV
     Dosage: 1 MG 1 TIME PER DAY
     Route: 048
     Dates: start: 202004, end: 202008
  2. NORVASC [Concomitant]
     Active Substance: AMLODIPINE BESYLATE
     Route: 065
  3. IBRANCE [Suspect]
     Active Substance: PALBOCICLIB
     Route: 065
     Dates: start: 202005, end: 20200818

REACTIONS (4)
  - Drug ineffective [Unknown]
  - Weight decreased [Not Recovered/Not Resolved]
  - Breast cancer stage IV [Fatal]
  - Disease progression [Unknown]

NARRATIVE: CASE EVENT DATE: 202006
